FAERS Safety Report 20591126 (Version 2)
Quarter: 2022Q2

REPORT INFORMATION
  Report Type: Spontaneous
  Country: CN (occurrence: CN)
  Receive Date: 20220314
  Receipt Date: 20220408
  Transmission Date: 20220721
  Serious: Yes (Hospitalization, Other)
  Sender: FDA-Public Use
  Company Number: CN-MLMSERVICE-20220225-3400612-1

PATIENT
  Age: 72 Year
  Sex: Female
  Weight: 61 kg

DRUGS (2)
  1. VALSARTAN [Suspect]
     Active Substance: VALSARTAN
     Indication: Hypertension
     Dosage: 80 MILLIGRAM, QD (CAPSULE)
     Route: 065
     Dates: start: 201903, end: 20200414
  2. NIFEDIPINE [Concomitant]
     Active Substance: NIFEDIPINE
     Indication: Hypertension
     Dosage: 30 MILLIGRAM, QD
     Route: 065
     Dates: start: 2020

REACTIONS (2)
  - Erythema nodosum [Recovered/Resolved]
  - Erythema migrans [Recovered/Resolved]

NARRATIVE: CASE EVENT DATE: 20190401
